FAERS Safety Report 8915723 (Version 2)
Quarter: 2012Q4

REPORT INFORMATION
  Report Type: 
  Country: US (occurrence: US)
  Receive Date: 20121119
  Receipt Date: 20121203
  Transmission Date: 20130627
  Serious: No
  Sender: FDA-Public Use
  Company Number: US-009507513-1211USA005409

PATIENT
  Sex: Female
  Weight: 81.63 kg

DRUGS (2)
  1. CLARITIN-D 24 HOUR [Suspect]
     Indication: HYPERSENSITIVITY
     Dosage: 10 mg, Once
     Route: 048
     Dates: start: 20120910
  2. CLARITIN-D 24 HOUR [Suspect]
     Indication: MEDICAL OBSERVATION

REACTIONS (3)
  - Wheezing [Recovered/Resolved]
  - Cough [Recovered/Resolved]
  - Upper respiratory tract congestion [Recovered/Resolved]
